FAERS Safety Report 13066799 (Version 1)
Quarter: 2016Q4

REPORT INFORMATION
  Report Type: Spontaneous
  Country: US (occurrence: US)
  Receive Date: 20161227
  Receipt Date: 20161227
  Transmission Date: 20170207
  Serious: No
  Sender: FDA-Public Use
  Company Number: US-009507513-1612USA010896

PATIENT
  Age: 25 Year
  Sex: Female
  Weight: 61.22 kg

DRUGS (2)
  1. VYVANSE [Concomitant]
     Active Substance: LISDEXAMFETAMINE DIMESYLATE
  2. NUVARING [Suspect]
     Active Substance: ETHINYL ESTRADIOL\ETONOGESTREL
     Indication: ENDOMETRIOSIS
     Dosage: 3 WEEKS IN, 1 OUT
     Route: 067
     Dates: start: 20161123

REACTIONS (3)
  - Abdominal pain [Unknown]
  - Fibrosis [Unknown]
  - Product use issue [Unknown]

NARRATIVE: CASE EVENT DATE: 2016
